FAERS Safety Report 9377703 (Version 2)
Quarter: 2013Q3

REPORT INFORMATION
  Report Type: Spontaneous
  Country: CH (occurrence: CH)
  Receive Date: 20130701
  Receipt Date: 20130827
  Transmission Date: 20140515
  Serious: Yes (Hospitalization)
  Sender: FDA-Public Use
  Company Number: CH-BRISTOL-MYERS SQUIBB COMPANY-19035211

PATIENT
  Age: 51 Year
  Sex: Female

DRUGS (5)
  1. BARACLUDE [Suspect]
     Indication: HEPATITIS B
     Route: 048
     Dates: end: 20130412
  2. VIREAD [Suspect]
     Indication: HEPATITIS B
     Route: 048
     Dates: end: 20130412
  3. ENATEC [Concomitant]
     Route: 048
  4. INDERAL [Concomitant]
     Route: 048
  5. PARIET [Concomitant]

REACTIONS (1)
  - Pancreatitis [Recovered/Resolved]
